FAERS Safety Report 4799810-0 (Version None)
Quarter: 2005Q4

REPORT INFORMATION
  Report Type: 
  Country: None (occurrence: None)
  Receive Date: 20051012
  Receipt Date: 20051007
  Transmission Date: 20060501
  Serious: Yes (Hospitalization, Other)
  Sender: FDA-Public Use
  Company Number: HQWYE946210OCT05

PATIENT
  Age: 54 Year
  Sex: Female

DRUGS (3)
  1. EFFEXOR XR [Suspect]
     Indication: BACK PAIN
     Dosage: 150 MG 1X PER 1 DAY, ORAL
     Route: 048
     Dates: start: 20021212, end: 20050331
  2. OMEGA 3 (FISH OIL) [Concomitant]
  3. NEURONTIN [Concomitant]

REACTIONS (7)
  - AGITATION [None]
  - AKATHISIA [None]
  - AMNESIA [None]
  - DRUG WITHDRAWAL SYNDROME [None]
  - MANIA [None]
  - NIGHTMARE [None]
  - TREMOR [None]
